FAERS Safety Report 7471700-4 (Version None)
Quarter: 2011Q1

REPORT INFORMATION
  Report Type: 
  Country: None (occurrence: None)
  Receive Date: 20110302
  Receipt Date: 20100728
  Transmission Date: 20110831
  Serious: Yes (Other)
  Sender: FDA-Public Use
  Company Number: 163-21880-10072878

PATIENT
  Age: 64 Year
  Sex: Female

DRUGS (8)
  1. DEXAMETHASONE [Concomitant]
  2. GABAPENTIN [Concomitant]
  3. FISH OIL (FISH OIL) [Concomitant]
  4. MULTIVITAMIN [Concomitant]
  5. ASPIRIN [Concomitant]
  6. REVLIMID [Suspect]
     Indication: MULTIPLE MYELOMA
     Dosage: 2.5 MG, 1 IN 1 D, PO
     Route: 048
     Dates: start: 20100301
  7. SIMVASTATIN [Concomitant]
  8. OXYCODONE HCL [Concomitant]

REACTIONS (1)
  - HIP FRACTURE [None]
